FAERS Safety Report 11076751 (Version 2)
Quarter: 2016Q3

REPORT INFORMATION
  Report Type: Report from Study
  Country: US (occurrence: US)
  Receive Date: 20150429
  Receipt Date: 20160708
  Transmission Date: 20161109
  Serious: Yes (Hospitalization)
  Sender: FDA-Public Use
  Company Number: US-SA-2015SA054670

PATIENT
  Age: 43 Year
  Sex: Male
  Weight: 81.6 kg

DRUGS (11)
  1. LEVEMIR [Concomitant]
     Active Substance: INSULIN DETEMIR
  2. ATORVASTATIN [Concomitant]
     Active Substance: ATORVASTATIN
     Indication: BLOOD CHOLESTEROL
     Dates: end: 201602
  3. TRESIBA [Concomitant]
     Active Substance: INSULIN DEGLUDEC
  4. FENOFIBRATE. [Concomitant]
     Active Substance: FENOFIBRATE
     Indication: BLOOD CHOLESTEROL
     Dates: end: 201603
  5. NOVOLOG [Concomitant]
     Active Substance: INSULIN ASPART
  6. ATENOLOL. [Concomitant]
     Active Substance: ATENOLOL
     Indication: BLOOD PRESSURE MEASUREMENT
     Dates: end: 201602
  7. GLIPIZIDE. [Concomitant]
     Active Substance: GLIPIZIDE
     Indication: BLOOD GLUCOSE
  8. ISOSORBIDE. [Concomitant]
     Active Substance: ISOSORBIDE
     Indication: PROPHYLAXIS
  9. FUROSEMIDE. [Concomitant]
     Active Substance: FUROSEMIDE
     Indication: FLUID RETENTION
  10. LANTUS [Suspect]
     Active Substance: INSULIN GLARGINE
     Indication: DIABETES MELLITUS
     Dosage: FREQUENCY- AM/PM DOSE:40 UNIT(S)
     Route: 065
     Dates: start: 20160128, end: 201603
  11. LANTUS [Suspect]
     Active Substance: INSULIN GLARGINE
     Indication: DIABETES MELLITUS
     Dosage: DOSE: 50 TO 70 UNITS IN THE MORNING,50 TO 70 UNITS IN EVENING
     Route: 065
     Dates: start: 199101

REACTIONS (7)
  - Blood glucose fluctuation [Unknown]
  - Pancreatitis [Unknown]
  - Blood glucose increased [Unknown]
  - Renal failure [Unknown]
  - Cardiac disorder [Unknown]
  - Product use issue [Unknown]
  - Drug ineffective [Unknown]

NARRATIVE: CASE EVENT DATE: 1991
